FAERS Safety Report 11386037 (Version 1)
Quarter: 2015Q3

REPORT INFORMATION
  Report Type: Spontaneous
  Country: US (occurrence: None)
  Receive Date: 20150813
  Receipt Date: 20150813
  Transmission Date: 20151125
  Serious: No
  Sender: FDA-Public Use
  Company Number: None

PATIENT
  Age: 62 Year
  Sex: Male
  Weight: 67.3 kg

DRUGS (4)
  1. PROCARBAZINE [Suspect]
     Active Substance: PROCARBAZINE
     Dates: end: 20150807
  2. LOVENOX [Concomitant]
     Active Substance: ENOXAPARIN SODIUM
  3. RITUXIMAB (MOAB C2B8 ANTI CD20, CHIMERIC) [Suspect]
     Active Substance: RITUXIMAB
     Dates: end: 20150804
  4. METHOTREXATE [Suspect]
     Active Substance: METHOTREXATE
     Dates: end: 20150806

REACTIONS (2)
  - Syncope [None]
  - Lacunar infarction [None]

NARRATIVE: CASE EVENT DATE: 20150807
